FAERS Safety Report 24308218 (Version 4)
Quarter: 2025Q3

REPORT INFORMATION
  Report Type: Spontaneous
  Country: EU (occurrence: EU)
  Receive Date: 20240911
  Receipt Date: 20250918
  Transmission Date: 20251021
  Serious: Yes (Death)
  Sender: TEVA
  Company Number: EU-TEVA-VS-3241104

PATIENT
  Age: 52 Year
  Sex: Female

DRUGS (13)
  1. GEFITINIB [Suspect]
     Active Substance: GEFITINIB
     Indication: Metastatic bronchial carcinoma
     Route: 065
     Dates: start: 201805, end: 201902
  2. ALECTINIB [Suspect]
     Active Substance: ALECTINIB
     Indication: Metastatic bronchial carcinoma
     Route: 065
     Dates: start: 202010, end: 202101
  3. BEVACIZUMAB [Suspect]
     Active Substance: BEVACIZUMAB
     Indication: Metastatic bronchial carcinoma
     Route: 065
     Dates: start: 202004, end: 202010
  4. OSIMERTINIB [Suspect]
     Active Substance: OSIMERTINIB
     Indication: Metastatic bronchial carcinoma
     Route: 065
     Dates: start: 202001, end: 202004
  5. OSIMERTINIB [Suspect]
     Active Substance: OSIMERTINIB
     Indication: Metastatic bronchial carcinoma
     Route: 065
     Dates: start: 202101, end: 202105
  6. OSIMERTINIB [Suspect]
     Active Substance: OSIMERTINIB
     Indication: Metastatic bronchial carcinoma
     Route: 065
     Dates: start: 201902, end: 201906
  7. TRAMETINIB [Suspect]
     Active Substance: TRAMETINIB
     Indication: Adenocarcinoma
     Route: 065
     Dates: start: 202001, end: 202004
  8. PEMETREXED [Suspect]
     Active Substance: PEMETREXED
     Indication: Metastatic bronchial carcinoma
     Route: 065
     Dates: end: 202001
  9. DABRAFENIB [Suspect]
     Active Substance: DABRAFENIB
     Indication: Metastatic bronchial carcinoma
     Route: 065
     Dates: start: 202001, end: 202004
  10. CARBOPLATIN [Suspect]
     Active Substance: CARBOPLATIN
     Indication: Metastatic bronchial carcinoma
     Route: 065
     Dates: end: 202105
  11. CARBOPLATIN [Suspect]
     Active Substance: CARBOPLATIN
     Indication: Metastatic bronchial carcinoma
     Route: 065
     Dates: end: 202001
  12. GEMCITABINE [Suspect]
     Active Substance: GEMCITABINE
     Indication: Metastatic bronchial carcinoma
     Route: 065
     Dates: end: 202105
  13. PACLITAXEL [Suspect]
     Active Substance: PACLITAXEL
     Indication: Metastatic bronchial carcinoma
     Route: 065
     Dates: start: 202004, end: 202010

REACTIONS (1)
  - Drug ineffective [Fatal]
